FAERS Safety Report 4401319-0 (Version None)
Quarter: 2004Q3

REPORT INFORMATION
  Report Type: 
  Country: None (occurrence: None)
  Receive Date: 20040907
  Receipt Date: 20040304
  Transmission Date: 20050211
  Serious: No
  Sender: FDA-Public Use
  Company Number: US-BRISTOL-MYERS SQUIBB COMPANY-12524351

PATIENT
  Age: 71 Year
  Sex: Male
  Weight: 66 kg

DRUGS (3)
  1. COUMADIN [Suspect]
     Indication: CARDIAC DISORDER
     Dosage: DOSAGE: 2.5MG AND 5MG ALTERNATING DAILY
     Route: 048
  2. MULTI-VITAMIN [Suspect]
  3. TOPROL-XL [Concomitant]

REACTIONS (1)
  - INTERNATIONAL NORMALISED RATIO DECREASED [None]
